FAERS Safety Report 9285341 (Version 2)
Quarter: 2013Q2

REPORT INFORMATION
  Report Type: Report from Study
  Country: IT (occurrence: IT)
  Receive Date: 20130513
  Receipt Date: 20130528
  Transmission Date: 20140414
  Serious: Yes (Death)
  Sender: FDA-Public Use
  Company Number: IT-ASTELLAS-2013EU004231

PATIENT
  Sex: Male

DRUGS (1)
  1. MICAFUNGIN INJECTION [Suspect]
     Dosage: 100 MG, UNKNOWN/D
     Route: 065
     Dates: end: 20111114

REACTIONS (1)
  - Death [Fatal]
